FAERS Safety Report 9866690 (Version 1)
Quarter: 2014Q1

REPORT INFORMATION
  Report Type: Spontaneous
  Country: US (occurrence: US)
  Receive Date: 20140204
  Receipt Date: 20140204
  Transmission Date: 20141002
  Serious: No
  Sender: FDA-Public Use
  Company Number: US-BIOGENIDEC-2014BI008680

PATIENT
  Sex: Female

DRUGS (1)
  1. TECFIDERA [Suspect]
     Indication: MULTIPLE SCLEROSIS
     Route: 048
     Dates: start: 201310

REACTIONS (5)
  - Fatigue [Unknown]
  - Sciatica [Unknown]
  - Nausea [Unknown]
  - Abdominal pain [Unknown]
  - Dyspepsia [Unknown]
